FAERS Safety Report 12728574 (Version 1)
Quarter: 2016Q3

REPORT INFORMATION
  Report Type: Spontaneous
  Country: ES (occurrence: ES)
  Receive Date: 20160909
  Receipt Date: 20160909
  Transmission Date: 20161109
  Serious: Yes (Death, Hospitalization)
  Sender: FDA-Public Use
  Company Number: ES-TEVA-690413ISR

PATIENT
  Age: 72 Year
  Sex: Male

DRUGS (2)
  1. ACENOCOUMAROL [Concomitant]
     Active Substance: ACENOCOUMAROL
     Route: 065
  2. ALENDRONIC ACID [Suspect]
     Active Substance: ALENDRONIC ACID
     Indication: OSTEOPOROSIS
     Route: 065

REACTIONS (3)
  - Interstitial lung disease [Fatal]
  - Joint stabilisation [Fatal]
  - Atypical femur fracture [Recovered/Resolved]
